FAERS Safety Report 8340061-0 (Version None)
Quarter: 2012Q2

REPORT INFORMATION
  Report Type: 
  Country: None (occurrence: None)
  Receive Date: 20120507
  Receipt Date: 20090610
  Transmission Date: 20120825
  Serious: No
  Sender: FDA-Public Use
  Company Number: US-TEVA-2009002795

PATIENT
  Sex: Female
  Weight: 88.076 kg

DRUGS (2)
  1. TREANDA [Suspect]
     Route: 042
     Dates: start: 20090301
  2. TREANDA [Suspect]
     Indication: CHRONIC LYMPHOCYTIC LEUKAEMIA
     Route: 042
     Dates: start: 20090224, end: 20090225

REACTIONS (1)
  - LYMPHADENOPATHY [None]
